FAERS Safety Report 11616690 (Version 1)
Quarter: 2015Q4

REPORT INFORMATION
  Report Type: Report from Study
  Country: CO (occurrence: CO)
  Receive Date: 20151009
  Receipt Date: 20151009
  Transmission Date: 20160304
  Serious: Yes (Other)
  Sender: FDA-Public Use
  Company Number: CO-ABBVIE-15K-036-1477824-00

PATIENT
  Age: 45 Year
  Sex: Female
  Weight: 62 kg

DRUGS (1)
  1. HUMIRA [Suspect]
     Active Substance: ADALIMUMAB
     Indication: PSORIATIC ARTHROPATHY
     Route: 058
     Dates: start: 20150803, end: 20150907

REACTIONS (5)
  - Epilepsy [Recovering/Resolving]
  - Head injury [Recovering/Resolving]
  - Wound infection [Recovering/Resolving]
  - Fall [Recovering/Resolving]
  - Hair injury [Recovering/Resolving]

NARRATIVE: CASE EVENT DATE: 20150921
